FAERS Safety Report 5630943-2 (Version None)
Quarter: 2008Q1

REPORT INFORMATION
  Report Type: 
  Country: None (occurrence: None)
  Receive Date: 20080219
  Receipt Date: 20080215
  Transmission Date: 20080703
  Serious: Yes (Death, Hospitalization)
  Sender: FDA-Public Use
  Company Number: US-AVENTIS-200810976US

PATIENT
  Age: 91 Year
  Sex: Male

DRUGS (1)
  1. LOVENOX [Suspect]
     Route: 051
     Dates: start: 20080212, end: 20080213

REACTIONS (2)
  - DEATH [None]
  - HAEMORRHAGE [None]
